FAERS Safety Report 12463949 (Version 3)
Quarter: 2016Q4

REPORT INFORMATION
  Report Type: Report from Study
  Country: NL (occurrence: NL)
  Receive Date: 20160614
  Receipt Date: 20161020
  Transmission Date: 20170207
  Serious: Yes (Other)
  Sender: FDA-Public Use
  Company Number: NL-VERTEX PHARMACEUTICALS-2016-003663

PATIENT
  Age: 29 Year
  Sex: Male

DRUGS (10)
  1. FORMOTEROL [Concomitant]
     Active Substance: FORMOTEROL
     Dosage: FORMETEROL/BECLOMETHASONE (6/100 MCG), BID
  2. ORKAMBI [Suspect]
     Active Substance: IVACAFTOR\LUMACAFTOR
     Indication: CYSTIC FIBROSIS
     Dosage: 2 DF (400-250 MG), BID
     Route: 048
     Dates: start: 20160518
  3. VITAMIN D [Concomitant]
     Active Substance: CHOLECALCIFEROL
     Dosage: 1 DF, QD
  4. DORNASE ALFA [Concomitant]
     Active Substance: DORNASE ALFA
     Dosage: 2.5 MG, QD
  5. AZITHROMYCIN ANHYDROUS. [Concomitant]
     Active Substance: AZITHROMYCIN ANHYDROUS
     Dosage: 1 DF, THREE TIMES A WEEK
  6. PANCREASE HL [Concomitant]
     Active Substance: PANCRELIPASE
     Dosage: UNK, PRN
  7. BECLOMETHASONE [Concomitant]
     Active Substance: BECLOMETHASONE
     Dosage: FORMETEROL/BECLOMETHASONE (6/100 MCG), BID
  8. TOCOFEROL [Concomitant]
     Active Substance: TOCOPHEROL
     Dosage: 1 DF, QD
  9. AVAMYS [Concomitant]
     Active Substance: FLUTICASONE FUROATE
     Dosage: 2 DF, QD
  10. ESOMEPRAZOLE [Concomitant]
     Active Substance: ESOMEPRAZOLE
     Dosage: 1 DF, QD

REACTIONS (7)
  - Hyperhidrosis [Not Recovered/Not Resolved]
  - Cough [Not Recovered/Not Resolved]
  - Vomiting [Recovered/Resolved]
  - Dyspnoea [Not Recovered/Not Resolved]
  - Pyrexia [Recovered/Resolved]
  - Sputum increased [Not Recovered/Not Resolved]
  - Nausea [Recovered/Resolved]

NARRATIVE: CASE EVENT DATE: 20160518
